FAERS Safety Report 7267204-4 (Version None)
Quarter: 2011Q1

REPORT INFORMATION
  Report Type: 
  Country: None (occurrence: None)
  Receive Date: 20110201
  Receipt Date: 20101109
  Transmission Date: 20110831
  Serious: Yes (Other)
  Sender: FDA-Public Use
  Company Number: US-BAYER-201037533NA

PATIENT
  Sex: Female
  Weight: 48.98 kg

DRUGS (7)
  1. YASMIN [Suspect]
     Indication: ACNE
     Dosage: UNK
     Dates: start: 20030101, end: 20090101
  2. OCELLA [Suspect]
     Indication: ACNE
  3. NEXIUM [Concomitant]
     Indication: PRODUCT USED FOR UNKNOWN INDICATION
  4. UNCODEABLE ^UNCLASSIFIABLE^ [Concomitant]
     Indication: PRODUCT USED FOR UNKNOWN INDICATION
  5. YAZ [Suspect]
     Indication: ACNE
     Dosage: UNK
     Dates: start: 20030101, end: 20090101
  6. ALLEGRA [Concomitant]
     Indication: PRODUCT USED FOR UNKNOWN INDICATION
  7. UNCODEABLE ^UNCLASSIFIABLE^ [Concomitant]

REACTIONS (6)
  - PAIN [None]
  - ACNE [None]
  - CHOLECYSTITIS CHRONIC [None]
  - ALOPECIA [None]
  - INJURY [None]
  - BILIARY DYSKINESIA [None]
